FAERS Safety Report 7373646-9 (Version None)
Quarter: 2011Q1

REPORT INFORMATION
  Report Type: 
  Country: None (occurrence: None)
  Receive Date: 20110325
  Receipt Date: 20110322
  Transmission Date: 20110831
  Serious: Yes (Other)
  Sender: FDA-Public Use
  Company Number: US-TEVA-272779USA

PATIENT
  Sex: Female

DRUGS (2)
  1. AZILECT [Suspect]
     Indication: PARKINSON'S DISEASE
     Route: 048
     Dates: start: 20061101, end: 20110322
  2. ROPINIROLE HYDROCHLORIDE [Concomitant]
     Indication: PARKINSON'S DISEASE
     Route: 048
     Dates: start: 20081101

REACTIONS (1)
  - OSTEONECROSIS [None]
